FAERS Safety Report 7220652-0 (Version None)
Quarter: 2011Q1

REPORT INFORMATION
  Report Type: 
  Country: None (occurrence: None)
  Receive Date: 20110111
  Receipt Date: 20110106
  Transmission Date: 20110831
  Serious: Yes (Life-Threatening, Other)
  Sender: FDA-Public Use
  Company Number: JP-PFIZER INC-2010175986

PATIENT

DRUGS (1)
  1. LYRICA [Suspect]
     Dosage: 150 MG/DAY
     Route: 048

REACTIONS (1)
  - PULMONARY EMBOLISM [None]
